FAERS Safety Report 8973966 (Version 1)
Quarter: 2012Q4

REPORT INFORMATION
  Report Type: 
  Country: US (occurrence: US)
  Receive Date: 20121218
  Receipt Date: 20121218
  Transmission Date: 20130627
  Serious: No
  Sender: FDA-Public Use
  Company Number: US-BRISTOL-MYERS SQUIBB COMPANY-16394447

PATIENT
  Age: 41 Year
  Sex: Male

DRUGS (1)
  1. ABILIFY [Suspect]

REACTIONS (5)
  - Mental impairment [Unknown]
  - Feeling abnormal [Unknown]
  - Gynaecomastia [Unknown]
  - Insulin resistance [Unknown]
  - Hormone level abnormal [Unknown]
